FAERS Safety Report 23434214 (Version 1)
Quarter: 2024Q1

REPORT INFORMATION
  Report Type: Spontaneous
  Country: CA (occurrence: CA)
  Receive Date: 20240123
  Receipt Date: 20240123
  Transmission Date: 20240410
  Serious: Yes (Other)
  Sender: FDA-Public Use
  Company Number: CA-PFIZER INC-202300401049

PATIENT
  Age: 27 Year
  Sex: Female

DRUGS (4)
  1. METHOTREXATE SODIUM [Suspect]
     Active Substance: METHOTREXATE SODIUM
     Indication: Crohn^s disease
     Dosage: 1 DF
     Route: 065
  2. ABRILADA [Concomitant]
     Active Substance: ADALIMUMAB-AFZB
     Indication: Crohn^s disease
     Dosage: 1 DF, WEEK 0 160MG, WEEK 2 80 MG, 40 MG EVERY OTHER
     Route: 058
     Dates: start: 20231228
  3. CIPROFLOXACIN [Concomitant]
     Active Substance: CIPROFLOXACIN
     Dosage: UNK
  4. METRONIDAZOLE [Concomitant]
     Active Substance: METRONIDAZOLE
     Dosage: UNK

REACTIONS (6)
  - Anal fistula [Recovering/Resolving]
  - Drug ineffective for unapproved indication [Unknown]
  - Anal fissure [Unknown]
  - Off label use [Unknown]
  - Abscess [Unknown]
  - Fistula [Unknown]

NARRATIVE: CASE EVENT DATE: 20231127
